FAERS Safety Report 9522690 (Version 1)
Quarter: 2013Q1

REPORT INFORMATION
  Report Type: Spontaneous
  Country: US (occurrence: None)
  Receive Date: 20130305
  Receipt Date: 20130305
  Transmission Date: 20140127
  Serious: Yes (Hospitalization)
  Sender: FDA-Public Use
  Company Number: 163-21880-12064040

PATIENT
  Age: 44 Year
  Sex: Male

DRUGS (1)
  1. REVLIMID (LENALIDOMIDE) (CAPSULES) [Suspect]
     Indication: PLASMA CELL MYELOMA
     Dosage: 10 MG,  X 21,  PO
     Route: 048
     Dates: start: 20120319

REACTIONS (3)
  - Pulmonary oedema [None]
  - Bacterial infection [None]
  - Full blood count decreased [None]
